FAERS Safety Report 9641558 (Version 1)
Quarter: 2013Q4

REPORT INFORMATION
  Report Type: Spontaneous
  Country: US (occurrence: US)
  Receive Date: 20131023
  Receipt Date: 20131023
  Transmission Date: 20140711
  Serious: Yes (Other)
  Sender: FDA-Public Use
  Company Number: US-BAYER-2013-126357

PATIENT
  Age: 75 Year
  Sex: Male
  Weight: 106.58 kg

DRUGS (6)
  1. BAYER ASPIRIN REGIMEN ADULT LOW STRENGTH [Suspect]
     Indication: BLOOD PRESSURE ABNORMAL
     Dosage: 1 DF, QD
     Route: 048
     Dates: start: 2005, end: 20131013
  2. ONE A DAY MEN^S 50+ HEALTHY ADVANTAGE [Concomitant]
  3. VITAMIN E [Concomitant]
  4. VITAMIN D [Concomitant]
  5. GINKGO BILOBA [Concomitant]
  6. LIPOFLAVONOID [Concomitant]

REACTIONS (3)
  - Hypoacusis [None]
  - Tinnitus [Not Recovered/Not Resolved]
  - Off label use [None]
